FAERS Safety Report 18445987 (Version 1)
Quarter: 2020Q4

REPORT INFORMATION
  Report Type: Spontaneous
  Country: US (occurrence: US)
  Receive Date: 20201030
  Receipt Date: 20201030
  Transmission Date: 20210114
  Serious: No
  Sender: FDA-Public Use
  Company Number: US-009507513-2010USA011943

PATIENT
  Sex: Male

DRUGS (18)
  1. ACYCLOVIR. [Concomitant]
     Active Substance: ACYCLOVIR
     Indication: HERPES ZOSTER
     Dosage: 1 ^GM^
     Dates: start: 20130601
  2. ACYCLOVIR. [Concomitant]
     Active Substance: ACYCLOVIR
     Indication: POST HERPETIC NEURALGIA
  3. GABAPENTIN. [Concomitant]
     Active Substance: GABAPENTIN
     Indication: TYPE 2 DIABETES MELLITUS
     Dosage: 400 MILLIGRAM, 3X DAY
     Dates: start: 20130501
  4. GABAPENTIN. [Concomitant]
     Active Substance: GABAPENTIN
     Indication: HERPES ZOSTER
  5. ATORVASTATIN [Concomitant]
     Active Substance: ATORVASTATIN
     Indication: TYPE 2 DIABETES MELLITUS
     Dosage: 20 MILLIGRAM, 1 A DAY
     Dates: start: 20161207
  6. NAPROXEN. [Concomitant]
     Active Substance: NAPROXEN
     Indication: POST HERPETIC NEURALGIA
  7. COZAAR [Suspect]
     Active Substance: LOSARTAN POTASSIUM
     Indication: TYPE 2 DIABETES MELLITUS
     Dosage: 50 MILLIGRAM, 1 A DAY
     Route: 048
     Dates: start: 20161207
  8. MUPIROCIN. [Concomitant]
     Active Substance: MUPIROCIN
     Indication: HERPES ZOSTER
     Dosage: UNK
     Dates: start: 20130601
  9. NAPROXEN. [Concomitant]
     Active Substance: NAPROXEN
     Indication: HERPES ZOSTER
     Dosage: UNK
     Dates: start: 20130601
  10. COZAAR [Suspect]
     Active Substance: LOSARTAN POTASSIUM
     Indication: BLOOD PRESSURE INCREASED
  11. CEPHALEXIN. [Concomitant]
     Active Substance: CEPHALEXIN
     Indication: HERPES ZOSTER
     Dosage: UNK
     Dates: start: 20130601
  12. CEPHALEXIN. [Concomitant]
     Active Substance: CEPHALEXIN
     Indication: STAPHYLOCOCCAL INFECTION
  13. ACETAMINOPHEN (+) BUTALBITAL [Concomitant]
     Active Substance: ACETAMINOPHEN\BUTALBITAL
     Indication: HERPES ZOSTER
     Dosage: UNK
     Dates: start: 20130601
  14. ACETAMINOPHEN (+) BUTALBITAL [Concomitant]
     Active Substance: ACETAMINOPHEN\BUTALBITAL
     Indication: POST HERPETIC NEURALGIA
  15. METFORMIN [Concomitant]
     Active Substance: METFORMIN HYDROCHLORIDE
     Indication: TYPE 2 DIABETES MELLITUS
     Dosage: 500 MILLIGRAM, 4X DAILY
     Dates: start: 20161207
  16. GABAPENTIN. [Concomitant]
     Active Substance: GABAPENTIN
     Indication: POST HERPETIC NEURALGIA
  17. ATORVASTATIN [Concomitant]
     Active Substance: ATORVASTATIN
     Indication: BLOOD PRESSURE INCREASED
  18. MUPIROCIN. [Concomitant]
     Active Substance: MUPIROCIN
     Indication: STAPHYLOCOCCAL INFECTION

REACTIONS (1)
  - Product use in unapproved indication [Unknown]

NARRATIVE: CASE EVENT DATE: 20161207
